FAERS Safety Report 18642983 (Version 1)
Quarter: 2020Q4

REPORT INFORMATION
  Report Type: Spontaneous
  Country: US (occurrence: US)
  Receive Date: 20201218
  Receipt Date: 20201218
  Transmission Date: 20210114
  Serious: Yes (Hospitalization)
  Sender: FDA-Public Use
  Company Number: None

PATIENT
  Age: 88 Year
  Sex: Male

DRUGS (7)
  1. BENZONATATE. [Concomitant]
     Active Substance: BENZONATATE
  2. CLARITHROMYC [Concomitant]
  3. DILTIAZEM ER [Concomitant]
     Active Substance: DILTIAZEM
  4. DEXAMETHASON [Concomitant]
     Active Substance: DEXAMETHASONE
  5. ESBRIET [Suspect]
     Active Substance: PIRFENIDONE
     Indication: ILLNESS
     Route: 048
     Dates: start: 20180123
  6. AMOXICILLIN. [Concomitant]
     Active Substance: AMOXICILLIN
  7. DARIFENACIN. [Concomitant]
     Active Substance: DARIFENACIN

REACTIONS (2)
  - Heart rate increased [None]
  - Dehydration [None]

NARRATIVE: CASE EVENT DATE: 20201212
